FAERS Safety Report 8072283-0 (Version None)
Quarter: 2012Q1

REPORT INFORMATION
  Report Type: 
  Country: None (occurrence: None)
  Receive Date: 20120126
  Receipt Date: 20120117
  Transmission Date: 20120608
  Serious: Yes (Hospitalization)
  Sender: FDA-Public Use
  Company Number: AU-UCBSA-027546

PATIENT
  Sex: Female
  Weight: 13 kg

DRUGS (4)
  1. KEPPRA [Suspect]
     Indication: CONVULSION
     Route: 048
     Dates: start: 20100215
  2. KEFLEX [Suspect]
     Indication: LUNG INFECTION
     Dates: start: 20070101
  3. PHENOBARBITAL TAB [Suspect]
     Dates: start: 20070101
  4. VALPROATE SODIUM [Suspect]
     Dates: start: 20070101

REACTIONS (2)
  - CARDIOMYOPATHY [None]
  - BRADYCARDIA [None]
